FAERS Safety Report 8446504-6 (Version None)
Quarter: 2012Q2

REPORT INFORMATION
  Report Type: 
  Country: None (occurrence: None)
  Receive Date: 20120618
  Receipt Date: 20120430
  Transmission Date: 20120825
  Serious: No
  Sender: FDA-Public Use
  Company Number: US-TEVA-336371USA

PATIENT
  Sex: Male

DRUGS (1)
  1. ACTIQ [Suspect]
     Indication: MUSCULOSKELETAL PAIN
     Dosage: 100 MICROGRAM;
     Route: 002
     Dates: start: 20120409, end: 20120410

REACTIONS (4)
  - OFF LABEL USE [None]
  - VOMITING [None]
  - NAUSEA [None]
  - DRUG ADMINISTRATION ERROR [None]
